FAERS Safety Report 7184163-3 (Version None)
Quarter: 2010Q4

REPORT INFORMATION
  Report Type: 
  Country: None (occurrence: None)
  Receive Date: 20101222
  Receipt Date: 20101215
  Transmission Date: 20110411
  Serious: Yes (Death)
  Sender: FDA-Public Use
  Company Number: JP-ABBOTT-10P-087-0691089-00

PATIENT
  Sex: Male
  Weight: 51 kg

DRUGS (11)
  1. SEVOFLURANE [Suspect]
     Indication: GENERAL ANAESTHESIA
     Dosage: 0.8-1.5%
     Route: 055
     Dates: start: 20100326, end: 20100326
  2. PROPOFOL [Concomitant]
     Indication: INDUCTION OF ANAESTHESIA
     Dates: start: 20100326, end: 20100326
  3. FENTANYL-100 [Concomitant]
     Indication: ANALGESIC THERAPY
     Dates: start: 20100326, end: 20100326
  4. ULTIVA [Concomitant]
     Indication: ANALGESIC THERAPY
     Dates: start: 20100326, end: 20100326
  5. ROCURONIUM BROMIDE [Concomitant]
     Indication: MUSCLE RELAXANT THERAPY
     Dates: start: 20100326, end: 20100326
  6. EPHEDRINE [Concomitant]
     Indication: VASODILATATION
     Dates: start: 20100326, end: 20100326
  7. NEOSYNESIN [Concomitant]
     Indication: VASODILATATION
     Dates: start: 20100326, end: 20100326
  8. XYLOCAINE [Concomitant]
     Indication: EPIDURAL ANAESTHESIA
     Dates: start: 20100326, end: 20100326
  9. ROPIVACAINE HYDROCHLORIDE [Concomitant]
     Indication: ANALGESIC THERAPY
     Dates: start: 20100326, end: 20100326
  10. MORPHINE HYDROCHLORIDE [Concomitant]
     Indication: ANALGESIC THERAPY
     Dates: start: 20100326, end: 20100326
  11. CEFOPERAZONE SODIUM/SULBACTAM SODIUM [Concomitant]
     Indication: INFECTION PROPHYLAXIS
     Dates: start: 20100326, end: 20100326

REACTIONS (3)
  - ACUTE HEPATIC FAILURE [None]
  - HYPOTENSION [None]
  - MULTI-ORGAN FAILURE [None]
